FAERS Safety Report 25911415 (Version 7)
Quarter: 2025Q4

REPORT INFORMATION
  Report Type: Report from Study
  Country: CN (occurrence: CN)
  Receive Date: 20251013
  Receipt Date: 20251229
  Transmission Date: 20260117
  Serious: Yes (Hospitalization)
  Sender: JOHNSON AND JOHNSON
  Company Number: CN-JNJFOC-20251011764

PATIENT
  Age: 36 Year
  Sex: Male

DRUGS (20)
  1. ESKETAMINE [Suspect]
     Active Substance: ESKETAMINE
     Indication: Major depression
     Dosage: ONCE
     Route: 045
  2. ESKETAMINE [Suspect]
     Active Substance: ESKETAMINE
     Indication: Suicidal ideation
     Dosage: ONCE
     Route: 045
  3. ESKETAMINE [Suspect]
     Active Substance: ESKETAMINE
     Dosage: ONCE
     Route: 045
  4. ESKETAMINE [Suspect]
     Active Substance: ESKETAMINE
     Dosage: ONCE
     Route: 045
  5. SERTRALINE HYDROCHLORIDE [Concomitant]
     Active Substance: SERTRALINE HYDROCHLORIDE
     Indication: Major depression
     Dosage: DAILY
     Route: 048
     Dates: start: 20250904, end: 20251007
  6. SERTRALINE HYDROCHLORIDE [Concomitant]
     Active Substance: SERTRALINE HYDROCHLORIDE
     Indication: Suicidal ideation
     Dosage: DAILY
     Route: 048
     Dates: start: 20251011
  7. ESZOPICLONE [Concomitant]
     Active Substance: ESZOPICLONE
     Indication: Major depression
     Dosage: DAILY
     Route: 048
     Dates: start: 20250806, end: 20251007
  8. ESZOPICLONE [Concomitant]
     Active Substance: ESZOPICLONE
     Indication: Suicidal ideation
  9. CLONAZEPAM [Concomitant]
     Active Substance: CLONAZEPAM
     Indication: Major depression
     Dosage: DAILY
     Route: 048
     Dates: start: 20250826, end: 20251007
  10. CLONAZEPAM [Concomitant]
     Active Substance: CLONAZEPAM
     Indication: Suicidal ideation
  11. RISPERIDONE [Concomitant]
     Active Substance: RISPERIDONE
     Indication: Major depression
     Dosage: DAILY
     Route: 048
     Dates: start: 20250904, end: 20251007
  12. RISPERIDONE [Concomitant]
     Active Substance: RISPERIDONE
     Indication: Suicidal ideation
  13. HALOPERIDOL [Concomitant]
     Active Substance: HALOPERIDOL
     Indication: Major depression
     Dosage: ONCE
     Route: 030
     Dates: start: 20251007, end: 20251007
  14. HALOPERIDOL [Concomitant]
     Active Substance: HALOPERIDOL
     Indication: Suicidal ideation
  15. LORAZEPAM [Concomitant]
     Active Substance: LORAZEPAM
     Indication: Major depression
     Route: 048
     Dates: start: 20251008
  16. LORAZEPAM [Concomitant]
     Active Substance: LORAZEPAM
     Indication: Suicidal ideation
  17. OLANZAPINE [Concomitant]
     Active Substance: OLANZAPINE
     Indication: Major depression
     Route: 048
     Dates: start: 20251011
  18. OLANZAPINE [Concomitant]
     Active Substance: OLANZAPINE
     Indication: Suicidal ideation
  19. TOLUDESVENLAFAXINE HYDROCHLORIDE [Concomitant]
     Active Substance: TOLUDESVENLAFAXINE HYDROCHLORIDE
     Indication: Major depression
     Route: 048
     Dates: start: 20251011
  20. TOLUDESVENLAFAXINE HYDROCHLORIDE [Concomitant]
     Active Substance: TOLUDESVENLAFAXINE HYDROCHLORIDE
     Indication: Suicidal ideation
     Route: 048
     Dates: start: 20251011

REACTIONS (1)
  - Affect lability [Recovering/Resolving]

NARRATIVE: CASE EVENT DATE: 20251008
